FAERS Safety Report 24035201 (Version 1)
Quarter: 2024Q3

REPORT INFORMATION
  Report Type: Spontaneous
  Country: US (occurrence: US)
  Receive Date: 20240701
  Receipt Date: 20240701
  Transmission Date: 20241016
  Serious: Yes (Hospitalization)
  Sender: Waylis
  Company Number: US-MLMSERVICE-20240613-PI099075-00119-1

PATIENT
  Age: 67 Year
  Sex: Male

DRUGS (2)
  1. DIAZEPAM [Suspect]
     Active Substance: DIAZEPAM
     Indication: Alcohol withdrawal syndrome
     Route: 050
  2. PHENOBARBITAL [Concomitant]
     Active Substance: PHENOBARBITAL
     Indication: Alcohol withdrawal syndrome

REACTIONS (3)
  - Depressed level of consciousness [Recovering/Resolving]
  - Encephalopathy [Recovering/Resolving]
  - Drug half-life increased [Recovering/Resolving]
